FAERS Safety Report 16543574 (Version 1)
Quarter: 2019Q3

REPORT INFORMATION
  Report Type: Spontaneous
  Country: US (occurrence: US)
  Receive Date: 20190709
  Receipt Date: 20190709
  Transmission Date: 20191004
  Serious: No
  Sender: FDA-Public Use
  Company Number: US-C B FLEET CO INC-201806-US-001291

PATIENT
  Age: 4 Year
  Sex: Male

DRUGS (1)
  1. NIX COMPLETE MAXIMUM STRENGTH LICE ELIMINATION [Suspect]
     Active Substance: PERMETHRIN
     Indication: LICE INFESTATION
     Dosage: USED TREATMENT ONCE
     Route: 061

REACTIONS (1)
  - Drug ineffective [Not Recovered/Not Resolved]
